FAERS Safety Report 24039186 (Version 1)
Quarter: 2024Q3

REPORT INFORMATION
  Report Type: Report from Study
  Country: US (occurrence: US)
  Receive Date: 20240702
  Receipt Date: 20240702
  Transmission Date: 20241017
  Serious: Yes (Hospitalization, Other)
  Sender: ABBVIE
  Company Number: US-ABBVIE-5812783

PATIENT
  Sex: Female
  Weight: 71.667 kg

DRUGS (7)
  1. HUMIRA [Suspect]
     Active Substance: ADALIMUMAB
     Indication: Rheumatoid arthritis
     Dosage: FORM STRENGTH: 40 MILLIGRAM
     Route: 058
     Dates: start: 20190802, end: 202404
  2. METOPROLOL [Concomitant]
     Active Substance: METOPROLOL
     Indication: Heart valve operation
  3. ASPIRIN [Concomitant]
     Active Substance: ASPIRIN
     Indication: Heart valve operation
  4. SYNTHROID [Concomitant]
     Active Substance: LEVOTHYROXINE SODIUM
     Indication: Hypothyroidism
  5. ZETIA [Concomitant]
     Active Substance: EZETIMIBE
     Indication: Heart valve operation
  6. ROSUVASTATIN [Concomitant]
     Active Substance: ROSUVASTATIN
     Indication: Heart valve operation
  7. PROCARDIA [Concomitant]
     Active Substance: NIFEDIPINE
     Indication: Heart valve operation

REACTIONS (7)
  - Cardiomegaly [Recovering/Resolving]
  - Cardiac operation [Recovering/Resolving]
  - Post-acute COVID-19 syndrome [Not Recovered/Not Resolved]
  - Coronary artery occlusion [Recovering/Resolving]
  - Dyspnoea [Not Recovered/Not Resolved]
  - Post procedural complication [Not Recovered/Not Resolved]
  - Lung disorder [Not Recovered/Not Resolved]

NARRATIVE: CASE EVENT DATE: 20210101
